FAERS Safety Report 15300869 (Version 1)
Quarter: 2018Q3

REPORT INFORMATION
  Report Type: Spontaneous
  Country: US (occurrence: US)
  Receive Date: 20180809
  Receipt Date: 20180809
  Transmission Date: 20181010
  Serious: Yes (Hospitalization, Disabling)
  Sender: FDA-Public Use
  Company Number: None

PATIENT
  Age: 29 Year
  Sex: Female
  Weight: 55 kg

DRUGS (2)
  1. VALOCORDIN DIAZEPAM [Suspect]
     Active Substance: DIAZEPAM
     Indication: SLEEP DISORDER THERAPY
     Dosage: 7 DROP(S); ORAL AT BEDTIME?
     Route: 048
     Dates: start: 20170501, end: 20180119
  2. VITAMIN D [Concomitant]
     Active Substance: CHOLECALCIFEROL

REACTIONS (8)
  - Seizure [None]
  - Loss of consciousness [None]
  - Heart rate decreased [None]
  - Anxiety [None]
  - Blood pressure fluctuation [None]
  - Hypertension [None]
  - Balance disorder [None]
  - Bedridden [None]

NARRATIVE: CASE EVENT DATE: 20180119
